FAERS Safety Report 25189640 (Version 1)
Quarter: 2025Q2

REPORT INFORMATION
  Report Type: Spontaneous
  Country: BE (occurrence: BE)
  Receive Date: 20250411
  Receipt Date: 20250411
  Transmission Date: 20250716
  Serious: Yes (Death, Other)
  Sender: ORGANON
  Company Number: BE-STADA-01372136

PATIENT
  Age: 19 Year
  Sex: Male

DRUGS (8)
  1. MIRTAZAPINE [Suspect]
     Active Substance: MIRTAZAPINE
     Route: 048
  2. CITALOPRAM [Suspect]
     Active Substance: CITALOPRAM
  3. CODEINE [Suspect]
     Active Substance: CODEINE
  4. PROMETHAZINE [Suspect]
     Active Substance: PROMETHAZINE HYDROCHLORIDE
  5. KETAMINE [Suspect]
     Active Substance: KETAMINE
  6. NORDAZEPAM [Suspect]
     Active Substance: NORDAZEPAM
  7. PIPAMPERONE [Suspect]
     Active Substance: PIPAMPERONE
  8. HERBALS\MITRAGYNINE [Suspect]
     Active Substance: HERBALS\MITRAGYNINE

REACTIONS (1)
  - Drug abuse [Fatal]
